FAERS Safety Report 19289324 (Version 10)
Quarter: 2023Q2

REPORT INFORMATION
  Report Type: Spontaneous
  Country: US (occurrence: US)
  Receive Date: 20210521
  Receipt Date: 20230627
  Transmission Date: 20230721
  Serious: Yes (Other)
  Sender: FDA-Public Use
  Company Number: US-PFIZER INC-2021556033

PATIENT
  Age: 57 Year
  Sex: Female
  Weight: 106.59 kg

DRUGS (1)
  1. IBRANCE [Suspect]
     Active Substance: PALBOCICLIB
     Indication: Breast cancer stage IV
     Dosage: 125 MG, CYCLIC
     Route: 048
     Dates: start: 2020

REACTIONS (24)
  - Eye infection bacterial [Unknown]
  - Cellulitis [Unknown]
  - Arthropod bite [Unknown]
  - Taste disorder [Unknown]
  - Immune system disorder [Unknown]
  - Peripheral swelling [Unknown]
  - Pain [Unknown]
  - Subcutaneous abscess [Unknown]
  - Malaise [Unknown]
  - Frustration tolerance decreased [Unknown]
  - Anxiety [Unknown]
  - Fatigue [Unknown]
  - Ear infection [Unknown]
  - Candida infection [Unknown]
  - Oral pain [Not Recovered/Not Resolved]
  - Infected bite [Unknown]
  - Rash [Unknown]
  - Illness [Unknown]
  - Impaired work ability [Unknown]
  - Loss of personal independence in daily activities [Unknown]
  - Neoplasm progression [Unknown]
  - Skin infection [Not Recovered/Not Resolved]
  - Pyrexia [Unknown]
  - Lip infection [Not Recovered/Not Resolved]

NARRATIVE: CASE EVENT DATE: 20220101
